FAERS Safety Report 10860492 (Version 1)
Quarter: 2015Q1

REPORT INFORMATION
  Report Type: Spontaneous
  Country: US (occurrence: US)
  Receive Date: 20150223
  Receipt Date: 20150223
  Transmission Date: 20150721
  Serious: Yes (Other)
  Sender: FDA-Public Use
  Company Number: US-BRISTOL-MYERS SQUIBB COMPANY-BMS-2015-008924

PATIENT
  Sex: Female
  Weight: 68 kg

DRUGS (1)
  1. COUMADIN [Suspect]
     Active Substance: WARFARIN SODIUM
     Indication: ATRIAL FIBRILLATION
     Route: 065

REACTIONS (4)
  - Nausea [Unknown]
  - International normalised ratio increased [Unknown]
  - Cerebrovascular accident [Unknown]
  - Abdominal discomfort [Unknown]
